FAERS Safety Report 10552567 (Version 3)
Quarter: 2015Q1

REPORT INFORMATION
  Report Type: Spontaneous
  Country: FR (occurrence: FR)
  Receive Date: 20141029
  Receipt Date: 20150226
  Transmission Date: 20150720
  Serious: Yes (Death, Life-Threatening, Hospitalization)
  Sender: FDA-Public Use
  Company Number: FR-PFIZER INC-2014293097

PATIENT
  Sex: Male

DRUGS (2)
  1. EFFEXOR [Suspect]
     Active Substance: VENLAFAXINE HYDROCHLORIDE
     Indication: BIPOLAR DISORDER
     Dosage: UNK
     Route: 064
     Dates: end: 20140904
  2. LARGACTIL [Suspect]
     Active Substance: CHLORPROMAZINE
     Indication: BIPOLAR DISORDER
     Dosage: UNK
     Route: 064
     Dates: end: 20140904

REACTIONS (10)
  - Patent ductus arteriosus [Recovered/Resolved]
  - Intraventricular haemorrhage neonatal [Fatal]
  - Neonatal respiratory distress syndrome [Not Recovered/Not Resolved]
  - Premature baby [Fatal]
  - Neonatal anuria [Recovered/Resolved]
  - Renal failure [Recovered/Resolved]
  - Encephalopathy [Fatal]
  - Maternal exposure during pregnancy [Fatal]
  - Jaundice neonatal [Recovering/Resolving]
  - Thrombocytopenia [Recovered/Resolved]

NARRATIVE: CASE EVENT DATE: 2014
